FAERS Safety Report 8622774-6 (Version None)
Quarter: 2012Q3

REPORT INFORMATION
  Report Type: 
  Country: None (occurrence: None)
  Receive Date: 20120827
  Receipt Date: 20120816
  Transmission Date: 20120928
  Serious: Yes (Other)
  Sender: FDA-Public Use
  Company Number: US-JNJFOC-20120808382

PATIENT
  Sex: Female
  Weight: 79.38 kg

DRUGS (5)
  1. STELARA [Suspect]
     Dosage: 2 LOADING DOSE INJECTIONS
     Route: 058
     Dates: start: 20120101
  2. SIMVASTATIN [Concomitant]
     Route: 065
  3. STELARA [Suspect]
     Indication: PSORIASIS
     Dosage: 2 LOADING DOSE INJECTIONS
     Route: 058
     Dates: start: 20120101
  4. HYDROCHLOROTHIAZIDE [Concomitant]
     Route: 065
  5. AMBIEN [Concomitant]
     Dosage: 4-5 TIMES PER MONTH
     Route: 065

REACTIONS (3)
  - BONE PAIN [None]
  - BACK PAIN [None]
  - NEUROPATHY PERIPHERAL [None]
